FAERS Safety Report 5940619-X (Version None)
Quarter: 2008Q4

REPORT INFORMATION
  Report Type: 
  Country: None (occurrence: None)
  Receive Date: 20081103
  Receipt Date: 20081103
  Transmission Date: 20090506
  Serious: Yes (Other)
  Sender: FDA-Public Use
  Company Number: None

PATIENT
  Sex: Female
  Weight: 86.1834 kg

DRUGS (5)
  1. CYTOXAN [Suspect]
     Indication: BREAST CANCER
     Dates: start: 20080610
  2. CYTOXAN [Suspect]
     Indication: BREAST CANCER
     Dates: start: 20080624
  3. CYTOXAN [Suspect]
     Indication: BREAST CANCER
     Dates: start: 20080708
  4. CYTOXAN [Suspect]
     Indication: BREAST CANCER
     Dates: start: 20080722
  5. TAXOTERE [Suspect]
     Indication: BREAST CANCER
     Dates: start: 20080805

REACTIONS (6)
  - BODY TEMPERATURE INCREASED [None]
  - COUGH [None]
  - DYSPNOEA [None]
  - FATIGUE [None]
  - LOWER RESPIRATORY TRACT INFLAMMATION [None]
  - RED BLOOD CELL COUNT DECREASED [None]
